FAERS Safety Report 7625144-2 (Version None)
Quarter: 2011Q3

REPORT INFORMATION
  Report Type: 
  Country: None (occurrence: None)
  Receive Date: 20110721
  Receipt Date: 20110711
  Transmission Date: 20111222
  Serious: No
  Sender: FDA-Public Use
  Company Number: US-BIOGENIDEC-2011BI026017

PATIENT
  Sex: Female

DRUGS (2)
  1. GLEEVEC [Concomitant]
     Indication: LEUKAEMIA
  2. AVONEX [Suspect]
     Indication: MULTIPLE SCLEROSIS
     Route: 030
     Dates: start: 20030226

REACTIONS (3)
  - GAIT DISTURBANCE [None]
  - COGNITIVE DISORDER [None]
  - FATIGUE [None]
